FAERS Safety Report 22876546 (Version 4)
Quarter: 2023Q4

REPORT INFORMATION
  Report Type: Report from Study
  Country: US (occurrence: US)
  Receive Date: 20230829
  Receipt Date: 20231218
  Transmission Date: 20240110
  Serious: No
  Sender: FDA-Public Use
  Company Number: US-002147023-NVSC2023US185157

PATIENT
  Age: 52 Year
  Sex: Female

DRUGS (1)
  1. COSENTYX [Suspect]
     Active Substance: SECUKINUMAB
     Indication: Product used for unknown indication
     Dosage: 300 MG/KG, OTHER (CURRENTLY ON SAMPLE DOSES)
     Route: 058
     Dates: start: 20230821

REACTIONS (5)
  - Injection site pruritus [Unknown]
  - Influenza like illness [Unknown]
  - Fatigue [Unknown]
  - Myalgia [Unknown]
  - Pruritus [Recovered/Resolved]

NARRATIVE: CASE EVENT DATE: 20230821
